FAERS Safety Report 9742828 (Version 1)
Quarter: 2013Q4

REPORT INFORMATION
  Report Type: Spontaneous
  Country: GB (occurrence: GB)
  Receive Date: 20131210
  Receipt Date: 20131210
  Transmission Date: 20140711
  Serious: Yes (Hospitalization)
  Sender: FDA-Public Use
  Company Number: GB-TEVA-449103ISR

PATIENT
  Age: 59 Year
  Sex: Male

DRUGS (2)
  1. WARFARIN [Suspect]
     Dosage: INR 2-3
     Route: 048
     Dates: start: 2004, end: 20131113
  2. ASPIRIN [Suspect]
     Route: 048
     Dates: end: 20131113

REACTIONS (4)
  - Gastric ulcer [Recovering/Resolving]
  - Gastrointestinal haemorrhage [Recovering/Resolving]
  - Melaena [Unknown]
  - Erosive duodenitis [Recovered/Resolved]
